FAERS Safety Report 4655903-X (Version None)
Quarter: 2005Q2

REPORT INFORMATION
  Report Type: 
  Country: None (occurrence: None)
  Receive Date: 20050506
  Receipt Date: 20050506
  Transmission Date: 20051028
  Serious: No
  Sender: FDA-Public Use
  Company Number: None

PATIENT
  Age: 43 Year
  Sex: Female
  Weight: 79.8331 kg

DRUGS (6)
  1. FENTANYL [Suspect]
     Indication: PAIN
     Dosage: 2 PATCHES  Q3D  TRANSDERMAL
     Route: 062
     Dates: start: 20050422, end: 20050505
  2. FAMVIR [Concomitant]
  3. AMBIEN [Concomitant]
  4. CELEXA [Concomitant]
  5. CLIMARA [Concomitant]
  6. METHADONE HCL [Concomitant]

REACTIONS (4)
  - CONDITION AGGRAVATED [None]
  - DYSKINESIA [None]
  - PAIN [None]
  - PHARMACEUTICAL PRODUCT COMPLAINT [None]
